FAERS Safety Report 9523601 (Version 1)
Quarter: 2013Q3

REPORT INFORMATION
  Report Type: Spontaneous
  Country: BR (occurrence: BR)
  Receive Date: 20130913
  Receipt Date: 20130913
  Transmission Date: 20140515
  Serious: Yes (Other)
  Sender: FDA-Public Use
  Company Number: BR-ELI_LILLY_AND_COMPANY-BR201309000620

PATIENT
  Age: 52 Year
  Sex: Male

DRUGS (4)
  1. HUMULIN N [Suspect]
     Indication: TYPE 2 DIABETES MELLITUS
     Dosage: UNK, UNKNOWN
     Route: 065
  2. HUMULIN N [Suspect]
     Dosage: 16 IU, EACH EVENING
     Route: 065
     Dates: start: 2005
  3. ENALAPRIL [Concomitant]
     Dosage: 10 MG, QD
     Route: 065
  4. LINAGLIPTIN [Concomitant]
     Dosage: 5 MG, QD
     Route: 065

REACTIONS (4)
  - Blindness [Not Recovered/Not Resolved]
  - Retinal detachment [Not Recovered/Not Resolved]
  - Cataract [Unknown]
  - Drug dose omission [Unknown]
